FAERS Safety Report 11775782 (Version 1)
Quarter: 2015Q4

REPORT INFORMATION
  Report Type: Spontaneous
  Country: US (occurrence: US)
  Receive Date: 20151125
  Receipt Date: 20151125
  Transmission Date: 20160304
  Serious: No
  Sender: FDA-Public Use
  Company Number: US-JNJFOC-20151005076

PATIENT
  Sex: Female
  Weight: 88.91 kg

DRUGS (13)
  1. JUXTAPID [Concomitant]
     Active Substance: LOMITAPIDE MESYLATE
     Indication: TYPE II HYPERLIPIDAEMIA
     Dosage: AT BEDTIME
     Route: 048
     Dates: start: 20150611
  2. VITAMIN D [Concomitant]
     Active Substance: CHOLECALCIFEROL
     Route: 065
  3. LEVOTHYROXINE. [Concomitant]
     Active Substance: LEVOTHYROXINE
     Route: 065
  4. METFORMIN [Concomitant]
     Active Substance: METFORMIN HYDROCHLORIDE
     Route: 065
  5. GABAPENTIN. [Concomitant]
     Active Substance: GABAPENTIN
     Route: 065
  6. VITAMIN E [Concomitant]
     Active Substance: .ALPHA.-TOCOPHEROL
     Route: 065
  7. OMEGA 3-6-9 [Concomitant]
     Active Substance: FISH OIL
     Route: 065
  8. CINNAMON. [Concomitant]
     Active Substance: CINNAMON
     Route: 065
  9. JUXTAPID [Concomitant]
     Active Substance: LOMITAPIDE MESYLATE
     Indication: TYPE II HYPERLIPIDAEMIA
     Route: 048
     Dates: start: 20150707
  10. AMLODIPINE [Concomitant]
     Active Substance: AMLODIPINE BESYLATE
     Route: 065
  11. TYLENOL WITH CODEINE [Suspect]
     Active Substance: ACETAMINOPHEN\CODEINE PHOSPHATE
     Indication: PRODUCT USED FOR UNKNOWN INDICATION
     Route: 065
     Dates: start: 2015
  12. DICYCLOMINE [Concomitant]
     Active Substance: DICYCLOMINE HYDROCHLORIDE
     Route: 065
  13. ALLOPURINOL. [Concomitant]
     Active Substance: ALLOPURINOL
     Route: 065

REACTIONS (1)
  - Chest pain [Recovered/Resolved]

NARRATIVE: CASE EVENT DATE: 2015
